FAERS Safety Report 5196337-1 (Version None)
Quarter: 2006Q4

REPORT INFORMATION
  Report Type: 
  Country: None (occurrence: None)
  Receive Date: 20061222
  Receipt Date: 20061208
  Transmission Date: 20070319
  Serious: Yes (Hospitalization)
  Sender: FDA-Public Use
  Company Number: 2006146931

PATIENT
  Age: 74 Year
  Sex: Female
  Weight: 47.5 kg

DRUGS (13)
  1. CLINDAMYCIN PHOSPHATE [Suspect]
     Indication: PYREXIA
     Dosage: 1200 MG (600 MG, 2 IN 1D); INTRAVENOUS
     Route: 042
     Dates: start: 20060910, end: 20060921
  2. ADETPHOS (ADENOSINE TRIPHOSPHATE, DISODIUM SALT) [Concomitant]
  3. MERISLON (BETAHISTINE HYDROCHLORIDE) [Concomitant]
  4. TRAVELMIN (DIPHENHYDRAMINE SALICYLATE, DIPROPHYLLINE) [Concomitant]
  5. NIVADIL (NILVADIPINE) [Concomitant]
  6. PL (PYRIDOXAL) [Concomitant]
  7. NORFLOXACIN [Concomitant]
  8. EMPYNASE (PANCREATIN, PRONASE) [Concomitant]
  9. VOLTAREN [Concomitant]
  10. SELBEX (TEPRENONE) [Concomitant]
  11. LENDORMIN (BRITIZOLAM) [Concomitant]
  12. CELESTAMINE TAB [Concomitant]
  13. CEREKINON (TRIMEBUTINE MALEATE) [Concomitant]

REACTIONS (5)
  - DRUG ERUPTION [None]
  - ERYTHEMA MULTIFORME [None]
  - LIVER DISORDER [None]
  - RASH GENERALISED [None]
  - SKIN TEST POSITIVE [None]
